FAERS Safety Report 20473515 (Version 1)
Quarter: 2022Q1

REPORT INFORMATION
  Report Type: Spontaneous
  Country: US (occurrence: US)
  Receive Date: 20220215
  Receipt Date: 20220215
  Transmission Date: 20220423
  Serious: No
  Sender: FDA-Public Use
  Company Number: US-ALLERGAN-2113885US

PATIENT
  Sex: Female

DRUGS (1)
  1. TAZAROTENE [Suspect]
     Active Substance: TAZAROTENE
     Indication: Product used for unknown indication
     Dosage: 50 MG, QD
     Route: 061
     Dates: start: 20210311, end: 20210312

REACTIONS (3)
  - Expired product administered [Unknown]
  - Application site erythema [Unknown]
  - Application site irritation [Unknown]

NARRATIVE: CASE EVENT DATE: 20210312
